FAERS Safety Report 23840599 (Version 1)
Quarter: 2024Q2

REPORT INFORMATION
  Report Type: Spontaneous
  Country: HR (occurrence: HR)
  Receive Date: 20240510
  Receipt Date: 20240510
  Transmission Date: 20240716
  Serious: Yes (Hospitalization, Other)
  Sender: FDA-Public Use
  Company Number: HR-BRISTOL-MYERS SQUIBB COMPANY-2024-070362

PATIENT
  Age: 61 Year
  Sex: Female

DRUGS (2)
  1. OPDIVO [Suspect]
     Active Substance: NIVOLUMAB
     Indication: Renal cancer
     Dosage: 2 CYCLES
     Route: 042
     Dates: start: 20231129, end: 20231220
  2. YERVOY [Suspect]
     Active Substance: IPILIMUMAB
     Indication: Renal cancer
     Dosage: 2 CYCLES
     Route: 042
     Dates: start: 20231129, end: 20231220

REACTIONS (6)
  - Colitis [Unknown]
  - Adenovirus infection [Recovering/Resolving]
  - Clostridium difficile infection [Recovering/Resolving]
  - Malignant neoplasm progression [Unknown]
  - Pleural effusion [Unknown]
  - Influenza [Unknown]

NARRATIVE: CASE EVENT DATE: 20231222
